FAERS Safety Report 20940377 (Version 1)
Quarter: 2022Q2

REPORT INFORMATION
  Report Type: Report from Study
  Country: US (occurrence: US)
  Receive Date: 20220609
  Receipt Date: 20220609
  Transmission Date: 20220720
  Serious: Yes (Hospitalization, Other)
  Sender: FDA-Public Use
  Company Number: US-NOVARTISPH-NVSC2022US128531

PATIENT
  Sex: Female

DRUGS (1)
  1. ENTRESTO [Suspect]
     Active Substance: SACUBITRIL\VALSARTAN
     Indication: Product used for unknown indication
     Dosage: UNK UNK, BID
     Route: 065

REACTIONS (16)
  - Weight decreased [Unknown]
  - Oedema peripheral [Unknown]
  - Pericardial effusion [Unknown]
  - Haemorrhage [Unknown]
  - Pulmonary oedema [Unknown]
  - Abdominal pain lower [Unknown]
  - Chest pain [Unknown]
  - Amnesia [Unknown]
  - Heart rate decreased [Unknown]
  - Hypersomnia [Unknown]
  - Vaginal haemorrhage [Unknown]
  - Somnolence [Unknown]
  - Dyspnoea [Unknown]
  - Pruritus [Unknown]
  - Dizziness [Unknown]
  - Fatigue [Unknown]
